FAERS Safety Report 7304001-5 (Version None)
Quarter: 2011Q1

REPORT INFORMATION
  Report Type: 
  Country: None (occurrence: None)
  Receive Date: 20110221
  Receipt Date: 20110210
  Transmission Date: 20110831
  Serious: Yes (Other)
  Sender: FDA-Public Use
  Company Number: JP-MERCK-1101USA02936

PATIENT
  Age: 81 Year
  Sex: Female

DRUGS (2)
  1. PREDONINE [Suspect]
     Indication: POLYMYALGIA RHEUMATICA
     Route: 048
  2. FOSAMAX [Suspect]
     Indication: OSTEOPOROSIS
     Route: 048

REACTIONS (1)
  - OSTEOMYELITIS [None]
